FAERS Safety Report 4305964-2 (Version None)
Quarter: 2004Q1

REPORT INFORMATION
  Report Type: 
  Country: None (occurrence: None)
  Receive Date: 20040225
  Receipt Date: 20040213
  Transmission Date: 20041129
  Serious: Yes (Hospitalization)
  Sender: FDA-Public Use
  Company Number: 04P-056-0250310-00

PATIENT
  Age: 43 Year
  Sex: Male

DRUGS (6)
  1. DEPAKENE [Suspect]
     Dosage: 2500 MG, 1 IN 1 D, ORAL
     Route: 048
  2. LAMIVUDINE [Suspect]
     Indication: HIV INFECTION
     Dosage: 300 MG, 1 IN 1 D, ORAL
     Route: 048
     Dates: start: 20010326
  3. ABACAVIR SULFATE [Suspect]
     Indication: HIV INFECTION
     Dosage: 600 MG, 1 IN 1 D, ORAL
     Route: 048
     Dates: start: 20010326
  4. LOXAPINE SUCCINATE [Suspect]
     Indication: HIV INFECTION
     Dosage: 400 MG, 1 IN 1 D, ORAL
     Route: 048
     Dates: start: 20030618
  5. LOXAPINE SUCCINATE [Suspect]
     Indication: MENTAL DISORDER
     Dosage: 25 MG, 1 IN 1 D, ORAL
     Route: 048
  6. VENLAFAXINE HCL [Suspect]
     Indication: MENTAL DISORDER
     Dosage: 75 MG, 1 IN 1 D, ORAL
     Route: 048

REACTIONS (4)
  - COGNITIVE DISORDER [None]
  - CONDITION AGGRAVATED [None]
  - DISORIENTATION [None]
  - FALL [None]
